FAERS Safety Report 7431057-1 (Version None)
Quarter: 2011Q2

REPORT INFORMATION
  Report Type: 
  Country: None (occurrence: None)
  Receive Date: 20110421
  Receipt Date: 20110418
  Transmission Date: 20111010
  Serious: Yes (Hospitalization)
  Sender: FDA-Public Use
  Company Number: JP-ABBOTT-10P-087-0684905-00

PATIENT
  Sex: Female
  Weight: 54 kg

DRUGS (8)
  1. METHOTREXATE [Suspect]
     Indication: RHEUMATOID ARTHRITIS
     Dates: end: 20100930
  2. PREDNISOLONE [Concomitant]
     Dosage: 3 MG DAILY
     Route: 048
     Dates: start: 20100721, end: 20100914
  3. MISOPROSTOL [Concomitant]
     Indication: PROPHYLAXIS AGAINST GASTROINTESTINAL ULCER
     Dosage: 3 TABLETS DAILY
     Dates: end: 20100914
  4. HUMIRA [Suspect]
     Indication: RHEUMATOID ARTHRITIS
     Route: 058
     Dates: start: 20091007, end: 20100929
  5. PREDNISOLONE [Concomitant]
     Route: 048
     Dates: start: 20100915
  6. PREDNISOLONE [Concomitant]
     Indication: RHEUMATOID ARTHRITIS
     Dosage: 4 MG DAILY
     Route: 048
     Dates: start: 20100331, end: 20100720
  7. LOXOPROFEN SODIUM HYDRATE [Concomitant]
     Indication: RHEUMATOID ARTHRITIS
     Dosage: 3 TABLETS DAILY
     Dates: end: 20100914
  8. VIDARABINE [Concomitant]
     Indication: PRODUCT USED FOR UNKNOWN INDICATION
     Dosage: 10 GRAM DAILY
     Route: 061

REACTIONS (8)
  - EPSTEIN-BARR VIRUS INFECTION [None]
  - WHITE BLOOD CELL COUNT INCREASED [None]
  - RHINITIS [None]
  - C-REACTIVE PROTEIN INCREASED [None]
  - BLOOD LACTATE DEHYDROGENASE INCREASED [None]
  - IMMUNOSUPPRESSION [None]
  - PYREXIA [None]
  - LYMPHADENOPATHY [None]
